FAERS Safety Report 15215728 (Version 1)
Quarter: 2018Q3

REPORT INFORMATION
  Report Type: Spontaneous
  Country: US (occurrence: US)
  Receive Date: 20180703
  Receipt Date: 20180703
  Transmission Date: 20181010
  Serious: Yes (Death)
  Sender: FDA-Public Use
  Company Number: None

PATIENT
  Sex: Male

DRUGS (3)
  1. TOBRAMYCIN. [Suspect]
     Active Substance: TOBRAMYCIN
     Indication: HYPERCAPNIA
     Dosage: 2.5ML NASAL BID FOR 14  DAYS
     Route: 045
     Dates: start: 20180511
  2. TOBRAMYCIN. [Suspect]
     Active Substance: TOBRAMYCIN
     Indication: CHRONIC RESPIRATORY FAILURE
     Dosage: 2.5ML NASAL BID FOR 14  DAYS
     Route: 045
     Dates: start: 20180511
  3. TOBRAMYCIN. [Suspect]
     Active Substance: TOBRAMYCIN
     Indication: HYPOXIA
     Dosage: 2.5ML NASAL BID FOR 14  DAYS
     Route: 045
     Dates: start: 20180511

REACTIONS (1)
  - Death [None]
